FAERS Safety Report 6727281-3 (Version None)
Quarter: 2010Q2

REPORT INFORMATION
  Report Type: 
  Country: None (occurrence: None)
  Receive Date: 20100517
  Receipt Date: 20100507
  Transmission Date: 20101027
  Serious: Yes (Hospitalization, Other)
  Sender: FDA-Public Use
  Company Number: US-JNJFOC-20100105776

PATIENT
  Sex: Female
  Weight: 86.64 kg

DRUGS (6)
  1. LEVAQUIN [Suspect]
     Indication: RESPIRATORY TRACT INFECTION
     Route: 048
     Dates: start: 20091223, end: 20091224
  2. LEVAQUIN [Suspect]
     Indication: BRONCHITIS
     Route: 048
     Dates: start: 20091223, end: 20091224
  3. LEVAQUIN [Suspect]
     Indication: NASOPHARYNGITIS
     Route: 048
     Dates: start: 20091223, end: 20091224
  4. ROBITUSSIN WITH CODEINE [Concomitant]
     Indication: COUGH
     Route: 048
     Dates: start: 20091223, end: 20100101
  5. ADVAIR DISKUS 100/50 [Concomitant]
     Indication: BRONCHITIS
     Route: 065
  6. HYCODAN [Concomitant]
     Indication: BRONCHITIS
     Route: 065

REACTIONS (8)
  - ANXIETY [None]
  - DYSPNOEA [None]
  - FEELING HOT [None]
  - HEADACHE [None]
  - HYPOAESTHESIA [None]
  - PAIN IN JAW [None]
  - PARAESTHESIA [None]
  - PARAPLEGIA [None]
